FAERS Safety Report 13299690 (Version 1)
Quarter: 2017Q1

REPORT INFORMATION
  Report Type: Spontaneous
  Country: US (occurrence: US)
  Receive Date: 20170306
  Receipt Date: 20170306
  Transmission Date: 20170428
  Serious: Yes (Hospitalization)
  Sender: FDA-Public Use
  Company Number: US-UNITED THERAPEUTICS-UNT-2017-002526

PATIENT
  Sex: Female

DRUGS (1)
  1. REMODULIN [Suspect]
     Active Substance: TREPROSTINIL
     Indication: PULMONARY ARTERIAL HYPERTENSION
     Dosage: 0.1 ?G/KG, CONTINUING
     Route: 041
     Dates: start: 20150805, end: 201702

REACTIONS (5)
  - Abdominal pain [Unknown]
  - Atrial septal defect [Unknown]
  - Device related sepsis [Unknown]
  - Cerebrovascular accident [Unknown]
  - Chest pain [Unknown]

NARRATIVE: CASE EVENT DATE: 20170220
